FAERS Safety Report 7812635-4 (Version None)
Quarter: 2011Q4

REPORT INFORMATION
  Report Type: 
  Country: None (occurrence: None)
  Receive Date: 20111013
  Receipt Date: 20110930
  Transmission Date: 20120403
  Serious: Yes (Life-Threatening, Hospitalization)
  Sender: FDA-Public Use
  Company Number: US-BAYER-2011-030917

PATIENT
  Age: 35 Year
  Sex: Female
  Weight: 59.864 kg

DRUGS (6)
  1. YAZ [Suspect]
     Indication: CONTRACEPTION
     Dosage: UNK
     Dates: start: 20090101, end: 20090901
  2. LEVOTHYROXINE SODIUM [Concomitant]
     Indication: AUTOIMMUNE THYROIDITIS
     Dosage: 112 MCG/24HR, UNK
     Route: 048
  3. DROSPIRENONE AND ETHINYL ESTRADIOL [Suspect]
     Indication: CONTRACEPTION
     Dosage: UNK
     Dates: start: 20091001, end: 20091201
  4. DROSPIRENONE AND ETHINYL ESTRADIOL [Suspect]
     Indication: ACNE
  5. ASPIRIN [Concomitant]
     Dosage: 81 MG, QD
     Route: 048
  6. YAZ [Suspect]
     Indication: ACNE

REACTIONS (10)
  - HEMIPARESIS [None]
  - INJURY [None]
  - PARALYSIS [None]
  - ANXIETY [None]
  - ANHEDONIA [None]
  - CEREBROVASCULAR ACCIDENT [None]
  - VISUAL IMPAIRMENT [None]
  - AMNESIA [None]
  - GENERAL PHYSICAL HEALTH DETERIORATION [None]
  - PAIN [None]
